FAERS Safety Report 4667677-7 (Version None)
Quarter: 2005Q2

REPORT INFORMATION
  Report Type: 
  Country: None (occurrence: None)
  Receive Date: 20050520
  Receipt Date: 20050506
  Transmission Date: 20051028
  Serious: Yes (Other)
  Sender: FDA-Public Use
  Company Number: US-GLAXOSMITHKLINE-A0557520A

PATIENT
  Age: 33 Year
  Sex: Female
  Weight: 61 kg

DRUGS (2)
  1. CITRUCEL SUGAR-FREE SUSPENSION ORANGE [Suspect]
     Indication: WEIGHT CONTROL
     Route: 048
     Dates: start: 20040401
  2. CITRUCEL CAPLETS [Suspect]
     Indication: WEIGHT CONTROL
     Route: 048
     Dates: start: 20050401

REACTIONS (9)
  - ASTHENIA [None]
  - CHOKING [None]
  - CONVULSION [None]
  - DISORIENTATION [None]
  - DYSPNOEA [None]
  - INTENTIONAL MISUSE [None]
  - OESOPHAGEAL PAIN [None]
  - PARAESTHESIA [None]
  - PRURITUS [None]
